FAERS Safety Report 9975525 (Version 2)
Quarter: 2014Q1

REPORT INFORMATION
  Report Type: Report from Study
  Country: US (occurrence: US)
  Receive Date: 20140306
  Receipt Date: 20140306
  Transmission Date: 20141002
  Serious: No
  Sender: FDA-Public Use
  Company Number: US-ABBVIE-13P-163-1155635-00

PATIENT
  Sex: Female

DRUGS (11)
  1. HUMIRA [Suspect]
     Indication: PSORIATIC ARTHROPATHY
     Dates: start: 201003, end: 201212
  2. HUMIRA [Suspect]
     Indication: PSORIASIS
     Dates: start: 201304, end: 201309
  3. PREDNISONE [Concomitant]
     Indication: PRODUCT USED FOR UNKNOWN INDICATION
  4. XANAX [Concomitant]
     Indication: INSOMNIA
     Dosage: AT BED TIME
  5. XANAX [Concomitant]
     Indication: ANXIETY
  6. OXYCODONE [Concomitant]
     Indication: BREAKTHROUGH PAIN
     Dosage: 15 OR 30 MG
  7. UNKNOWN TOPICAL MEDICATIONS [Concomitant]
     Indication: PSORIASIS
     Route: 061
  8. OXYMORPHONE [Concomitant]
     Indication: PAIN MANAGEMENT
  9. OXYMORPHONE [Concomitant]
     Indication: PSORIATIC ARTHROPATHY
  10. OXYCONTIN [Concomitant]
     Indication: PAIN MANAGEMENT
  11. ANTIBIOTICS [Concomitant]
     Indication: PRODUCT USED FOR UNKNOWN INDICATION

REACTIONS (5)
  - Drug screen positive [Not Recovered/Not Resolved]
  - Arthralgia [Not Recovered/Not Resolved]
  - Psoriasis [Not Recovered/Not Resolved]
  - Psoriasis [Not Recovered/Not Resolved]
  - Drug screen positive [Unknown]
